FAERS Safety Report 10556650 (Version 3)
Quarter: 2015Q2

REPORT INFORMATION
  Report Type: Spontaneous
  Country: US (occurrence: US)
  Receive Date: 20141031
  Receipt Date: 20150602
  Transmission Date: 20150821
  Serious: Yes (Hospitalization, Other)
  Sender: FDA-Public Use
  Company Number: US-BAYER-US-2005-027910

PATIENT
  Age: 23 Year
  Sex: Female
  Weight: 60 kg

DRUGS (15)
  1. DEMEROL [Concomitant]
     Active Substance: MEPERIDINE HYDROCHLORIDE
  2. TORADOL [Concomitant]
     Active Substance: KETOROLAC TROMETHAMINE
  3. DECADRON [Concomitant]
     Active Substance: DEXAMETHASONE
  4. DILANTIN [Concomitant]
     Active Substance: PHENYTOIN
  5. YAZ [Suspect]
     Active Substance: DROSPIRENONE\ETHINYL ESTRADIOL
     Dosage: UNK
     Dates: start: 20041204, end: 20051207
  6. EXCEDRIN [Concomitant]
     Active Substance: ACETAMINOPHEN\ASPIRIN\CAFFEINE
     Route: 048
  7. COMPAZINE [Concomitant]
     Active Substance: PROCHLORPERAZINE MALEATE
  8. YASMIN [Suspect]
     Active Substance: DROSPIRENONE\ETHINYL ESTRADIOL
     Indication: ORAL CONTRACEPTION
     Dosage: 1 TAB(S), 1X/DAY [DAILY DOSE: 1 TAB(S)] [TOTAL DOSE: 212 TAB(S)]
     Route: 048
     Dates: start: 20041204, end: 20051207
  9. REGLAN [Concomitant]
     Active Substance: METOCLOPRAMIDE HYDROCHLORIDE
  10. GIANVI [Suspect]
     Active Substance: DROSPIRENONE\ETHINYL ESTRADIOL
     Dosage: UNK
     Dates: start: 20041204, end: 20051207
  11. PREDNISONE. [Concomitant]
     Active Substance: PREDNISONE
     Indication: RESPIRATORY DISORDER
     Route: 048
  12. MORPHINE [Concomitant]
     Active Substance: MORPHINE
  13. OCELLA [Suspect]
     Active Substance: DROSPIRENONE\ETHINYL ESTRADIOL
     Dosage: UNK
     Dates: start: 20041204, end: 20051207
  14. BENADRYL [Concomitant]
     Active Substance: DIPHENHYDRAMINE HYDROCHLORIDE
  15. PHENERGAN [Concomitant]
     Active Substance: PROMETHAZINE HYDROCHLORIDE

REACTIONS (10)
  - Transverse sinus thrombosis [None]
  - Cerebrovascular accident [None]
  - Pain [None]
  - Injury [None]
  - Asthma [Unknown]
  - Pleuritic pain [Unknown]
  - Sinusitis [Unknown]
  - Emotional distress [None]
  - Cerebral venous thrombosis [Recovered/Resolved]
  - Headache [Recovered/Resolved]

NARRATIVE: CASE EVENT DATE: 2005
